FAERS Safety Report 13850845 (Version 1)
Quarter: 2017Q3

REPORT INFORMATION
  Report Type: Report from Study
  Country: CA (occurrence: CA)
  Receive Date: 20170809
  Receipt Date: 20170809
  Transmission Date: 20171127
  Serious: Yes (Other)
  Sender: FDA-Public Use
  Company Number: CA-GLAXOSMITHKLINE-CA2017GSK118160

PATIENT
  Age: 65 Year
  Sex: Female

DRUGS (1)
  1. MEPOLIZUMAB [Suspect]
     Active Substance: MEPOLIZUMAB
     Indication: ASTHMA
     Dosage: 100 MG, Z

REACTIONS (7)
  - Sneezing [Unknown]
  - Sinus congestion [Unknown]
  - Productive cough [Unknown]
  - Staphylococcal infection [Unknown]
  - Nasopharyngitis [Unknown]
  - Lymphocyte count decreased [Unknown]
  - Nasal congestion [Unknown]

NARRATIVE: CASE EVENT DATE: 201707
